FAERS Safety Report 4801142-9 (Version None)
Quarter: 2005Q4

REPORT INFORMATION
  Report Type: 
  Country: None (occurrence: None)
  Receive Date: 20051017
  Receipt Date: 20051004
  Transmission Date: 20060501
  Serious: Yes (Other)
  Sender: FDA-Public Use
  Company Number: DE-AMGEN-UK150601

PATIENT
  Sex: Female

DRUGS (6)
  1. MIMPARA [Suspect]
     Indication: HYPERPARATHYROIDISM SECONDARY
     Route: 048
     Dates: start: 20050203, end: 20050328
  2. ENALAPRIL [Concomitant]
     Route: 065
     Dates: end: 20050307
  3. ATORVASTATIN [Concomitant]
     Route: 065
  4. CALCIUM ACETATE [Concomitant]
     Route: 065
  5. DREISAVIT [Concomitant]
     Route: 065
  6. CALCITRIOL [Concomitant]
     Route: 065

REACTIONS (5)
  - ANGIONEUROTIC OEDEMA [None]
  - DYSPHAGIA [None]
  - DYSPNOEA [None]
  - SWELLING FACE [None]
  - TACHYCARDIA [None]
